FAERS Safety Report 18918474 (Version 1)
Quarter: 2021Q1

REPORT INFORMATION
  Report Type: Report from Study
  Country: HU (occurrence: HU)
  Receive Date: 20210219
  Receipt Date: 20210219
  Transmission Date: 20210420
  Serious: Yes (Hospitalization)
  Sender: FDA-Public Use
  Company Number: HU-EXELIXIS-XL18420034867

PATIENT
  Age: 50 Year
  Sex: Male
  Weight: 74.8 kg

DRUGS (4)
  1. NUTRIDRINK MAX [Concomitant]
  2. XL184 [Suspect]
     Active Substance: CABOZANTINIB
     Indication: RENAL CELL CARCINOMA
     Dosage: 40 MG, QD
     Route: 048
     Dates: start: 20200824, end: 20200928
  3. IPILIMUMAB [Suspect]
     Active Substance: IPILIMUMAB
     Indication: RENAL CELL CARCINOMA
     Dosage: 1 MG/KG, Q3WEEKS
     Route: 042
     Dates: start: 20200824
  4. NIVOLUMAB [Suspect]
     Active Substance: NIVOLUMAB
     Indication: RENAL CELL CARCINOMA
     Dosage: 3 MG/KG, Q3WEEKS
     Route: 042
     Dates: start: 20200824

REACTIONS (1)
  - Jejunal ulcer [Recovered/Resolved]

NARRATIVE: CASE EVENT DATE: 20201028
